FAERS Safety Report 20000734 (Version 1)
Quarter: 2021Q4

REPORT INFORMATION
  Report Type: Other
  Country: FR (occurrence: FR)
  Receive Date: 20211027
  Receipt Date: 20211027
  Transmission Date: 20220303
  Serious: Yes (Death, Hospitalization)
  Sender: FDA-Public Use
  Company Number: FR-ROCHE-2888595

PATIENT
  Age: 31 Year
  Sex: Male

DRUGS (3)
  1. RITUXIMAB [Suspect]
     Active Substance: RITUXIMAB
     Indication: Epstein-Barr virus test positive
     Route: 065
  2. RUXOLITINIB [Suspect]
     Active Substance: RUXOLITINIB
     Indication: Graft versus host disease
     Route: 065
  3. CYCLOSPORINE [Suspect]
     Active Substance: CYCLOSPORINE
     Indication: Graft versus host disease
     Route: 065

REACTIONS (9)
  - Adenovirus infection [Fatal]
  - Septic shock [Fatal]
  - Off label use [Fatal]
  - Metapneumovirus infection [Unknown]
  - Enterovirus infection [Unknown]
  - Rhinovirus infection [Unknown]
  - Pneumonia [Unknown]
  - Bacteroides bacteraemia [Unknown]
  - Genital herpes [Unknown]
